FAERS Safety Report 4296168-0 (Version None)
Quarter: 2004Q1

REPORT INFORMATION
  Report Type: 
  Country: None (occurrence: None)
  Receive Date: 20040217
  Receipt Date: 20030908
  Transmission Date: 20041129
  Serious: No
  Sender: FDA-Public Use
  Company Number: US-GLAXOSMITHKLINE-A0424935A

PATIENT
  Sex: Female

DRUGS (1)
  1. LAMICTAL [Suspect]
     Indication: DEPRESSION
     Route: 048

REACTIONS (6)
  - CHILLS [None]
  - HYPERSENSITIVITY [None]
  - NAUSEA [None]
  - PYREXIA [None]
  - RASH [None]
  - VOMITING [None]
